FAERS Safety Report 6822232-5 (Version None)
Quarter: 2010Q3

REPORT INFORMATION
  Report Type: 
  Country: None (occurrence: None)
  Receive Date: 20100708
  Receipt Date: 20100624
  Transmission Date: 20110219
  Serious: Yes (Hospitalization)
  Sender: FDA-Public Use
  Company Number: US-ALEXION-A201000761

PATIENT
  Sex: Female

DRUGS (9)
  1. SOLIRIS [Suspect]
     Indication: PAROXYSMAL NOCTURNAL HAEMOGLOBINURIA
     Dosage: UNK
     Route: 042
     Dates: start: 20100514
  2. CYCLOSPORINE [Concomitant]
     Dosage: 300 MG, BID
  3. CEFTRIAXONE [Concomitant]
     Dosage: 2 G, BID
  4. BACTRIM DS [Concomitant]
     Dosage: UNK, QD
  5. MORPHINE [Concomitant]
     Dosage: UNK, PRN
  6. ZOFRAN [Concomitant]
     Dosage: UNK,PRN
  7. TYLENOL (CAPLET) [Concomitant]
     Dosage: UNK,PRN
  8. BENADRYL [Concomitant]
     Dosage: UNK, PRN
  9. LORATADINE [Concomitant]
     Dosage: UNK

REACTIONS (2)
  - MENINGITIS MENINGOCOCCAL [None]
  - MENINGOCOCCAL SEPSIS [None]
